FAERS Safety Report 9822911 (Version 2)
Quarter: 2014Q1

REPORT INFORMATION
  Report Type: Spontaneous
  Country: US (occurrence: US)
  Receive Date: 20140116
  Receipt Date: 20140116
  Transmission Date: 20141002
  Serious: Yes (Other)
  Sender: FDA-Public Use
  Company Number: US-GILEAD-2010-0031332

PATIENT
  Age: 78 Year
  Sex: Female

DRUGS (7)
  1. LETAIRIS [Suspect]
     Indication: PULMONARY ARTERIAL HYPERTENSION
     Route: 048
     Dates: start: 20100811, end: 201008
  2. COUMADIN [Concomitant]
  3. LASIX [Concomitant]
  4. TOPROL XL [Concomitant]
  5. PRAVASTATIN [Concomitant]
  6. SERTRALINE [Concomitant]
  7. KLOR-CON [Concomitant]

REACTIONS (2)
  - Drug ineffective [Unknown]
  - Dyspnoea [Not Recovered/Not Resolved]
